FAERS Safety Report 23177573 (Version 2)
Quarter: 2023Q4

REPORT INFORMATION
  Report Type: Spontaneous
  Country: US (occurrence: US)
  Receive Date: 20231113
  Receipt Date: 20231227
  Transmission Date: 20240110
  Serious: Yes (Other)
  Sender: FDA-Public Use
  Company Number: US-AMGEN-USASP2023198339

PATIENT
  Age: 52 Year
  Sex: Female

DRUGS (1)
  1. AMJEVITA [Suspect]
     Active Substance: ADALIMUMAB-ATTO
     Indication: Rheumatoid arthritis
     Dosage: 40 MILLIGRAM, Q2WK
     Route: 065

REACTIONS (6)
  - Diabetes mellitus [Unknown]
  - Device difficult to use [Unknown]
  - Drug tolerance decreased [Unknown]
  - Drug dose omission by device [Unknown]
  - Stent placement [Unknown]
  - Product confusion [Unknown]

NARRATIVE: CASE EVENT DATE: 20230101
